FAERS Safety Report 20643842 (Version 1)
Quarter: 2022Q1

REPORT INFORMATION
  Report Type: Spontaneous
  Country: US (occurrence: None)
  Receive Date: 20220325
  Receipt Date: 20220325
  Transmission Date: 20220423
  Serious: Yes (Hospitalization)
  Sender: FDA-Public Use
  Company Number: None

PATIENT
  Sex: Female

DRUGS (15)
  1. VERZENIO [Suspect]
     Active Substance: ABEMACICLIB
     Indication: Breast cancer female
     Dosage: TAKE 1 TABLET BY MOUTH TWICE DAILY. MAY BE TAKEN WITH OR WITHOUT FOOD.
     Route: 048
  2. ALLEGRA ALRG TAB 180MG [Concomitant]
  3. BETAMETHASON POW SOD PHOS [Concomitant]
  4. CALCIUM TAB 600MG [Concomitant]
  5. CLOBETASOL PROPIONATE [Concomitant]
     Active Substance: CLOBETASOL PROPIONATE
  6. FULVESTRANT  INJ 250/5ML [Concomitant]
  7. GLUCOSAMINE TAB 500MG [Concomitant]
  8. HYDROXYZ HCL TAB 10MG [Concomitant]
  9. IBRANCE [Concomitant]
     Active Substance: PALBOCICLIB
  10. MAGNESIUM TAB 250MG [Concomitant]
  11. NAPROXEN TAB 220MG [Concomitant]
  12. PROLIA [Concomitant]
     Active Substance: DENOSUMAB
  13. PROPRANOLOL TAB20MG [Concomitant]
  14. TYLENOL TAB 500MG [Concomitant]
  15. VERZENIO [Concomitant]
     Active Substance: ABEMACICLIB

REACTIONS (1)
  - Therapy interrupted [None]
